FAERS Safety Report 7064591-7 (Version None)
Quarter: 2010Q4

REPORT INFORMATION
  Report Type: 
  Country: None (occurrence: None)
  Receive Date: 20101022
  Receipt Date: 20101022
  Transmission Date: 20110411
  Serious: Yes (Life-Threatening, Hospitalization, Disabling)
  Sender: FDA-Public Use
  Company Number: None

PATIENT
  Age: 43 Year
  Sex: Female
  Weight: 75.7507 kg

DRUGS (2)
  1. LEVORA 0.15/30-21 [Suspect]
     Dosage: ONCE DAILY BY MOUTH
     Route: 048
     Dates: start: 20090601
  2. IMITREX [Suspect]
     Indication: MIGRAINE
     Dosage: 50 MG, ONCE MAY REPEAT 2ND DOSE IN 2 HOURS (MAX 4 TABS DAILY) BY MOUTH UNKNOWN IF STARTED AT ALL
     Route: 048

REACTIONS (2)
  - CEREBROVASCULAR ACCIDENT [None]
  - CORONARY ARTERY DISEASE [None]
